FAERS Safety Report 7970153-7 (Version None)
Quarter: 2011Q4

REPORT INFORMATION
  Report Type: 
  Country: None (occurrence: None)
  Receive Date: 20111212
  Receipt Date: 20111130
  Transmission Date: 20120403
  Serious: Yes (Other)
  Sender: FDA-Public Use
  Company Number: US-JNJFOC-20111107754

PATIENT
  Sex: Male
  Weight: 79.38 kg

DRUGS (10)
  1. LOSARTAN POTASSIUM [Concomitant]
     Indication: BLOOD PRESSURE ABNORMAL
     Route: 048
  2. TIMOLOL MALEATE [Concomitant]
     Indication: GLAUCOMA
     Route: 047
     Dates: start: 19960101
  3. GLYBURIDE [Concomitant]
     Indication: DIABETES MELLITUS
     Route: 048
     Dates: start: 19960101
  4. CALCIUM WITH VITAMIN D [Concomitant]
     Indication: BONE DENSITY ABNORMAL
     Route: 048
     Dates: start: 20110101
  5. REMICADE [Suspect]
     Indication: COLITIS ULCERATIVE
     Route: 042
     Dates: start: 20111115
  6. TOPROL-XL [Concomitant]
     Indication: ATRIAL FIBRILLATION
     Route: 048
  7. ASPIRIN [Concomitant]
     Route: 048
  8. NEXIUM [Concomitant]
     Indication: GASTROOESOPHAGEAL REFLUX DISEASE
     Route: 048
     Dates: start: 20010101
  9. TIMOLOL MALEATE [Concomitant]
     Route: 047
     Dates: start: 19910101
  10. VITAMIN B-12 [Concomitant]
     Indication: MEDICAL DIET
     Route: 048
     Dates: start: 20030101

REACTIONS (8)
  - ARTHRALGIA [None]
  - JOINT LOCK [None]
  - DRUG INEFFECTIVE [None]
  - BLOOD GLUCOSE DECREASED [None]
  - HYPOKINESIA [None]
  - HYPERHIDROSIS [None]
  - DYSSTASIA [None]
  - BONE PAIN [None]
